FAERS Safety Report 9355000 (Version 1)
Quarter: 2013Q2

REPORT INFORMATION
  Report Type: Spontaneous
  Country: US (occurrence: None)
  Receive Date: 20130618
  Receipt Date: 20130618
  Transmission Date: 20140414
  Serious: Yes (Disabling)
  Sender: FDA-Public Use
  Company Number: None

PATIENT
  Age: 49 Year
  Sex: Female
  Weight: 52.16 kg

DRUGS (9)
  1. ATROVENT [Suspect]
     Indication: ASTHMA
     Dosage: 2 VIALS  19:19 - ATROVENT  19:41 - ATROVENT, 19:45 - ATROVENT  RESPIRATOR
     Dates: start: 20090426, end: 20090426
  2. LEVOTHYROXINE [Concomitant]
  3. ESTRADIOL [Concomitant]
  4. VENTOLIN [Concomitant]
  5. SINGULAR [Concomitant]
  6. VITAMIN D3 [Concomitant]
  7. VITAMIN E [Concomitant]
  8. CALCIUM [Concomitant]
  9. LUTEIN [Concomitant]

REACTIONS (6)
  - Dysphonia [None]
  - Menopausal symptoms [None]
  - Dysphonia [None]
  - Food allergy [None]
  - Gastrooesophageal reflux disease [None]
  - Spasmodic dysphonia [None]
